FAERS Safety Report 16279856 (Version 4)
Quarter: 2019Q2

REPORT INFORMATION
  Report Type: Report from Study
  Country: None (occurrence: BE)
  Receive Date: 20190507
  Receipt Date: 20190522
  Transmission Date: 20190711
  Serious: Yes (Hospitalization, Other)
  Sender: FDA-Public Use
  Company Number: BE-ABBVIE-19S-013-2769378-00

PATIENT
  Sex: Female

DRUGS (7)
  1. DUODOPA [Suspect]
     Active Substance: CARBIDOPA\LEVODOPA
     Indication: PARKINSON^S DISEASE
     Dosage: UNKNOWN DOSAGES
     Route: 050
     Dates: start: 20180423, end: 20180424
  2. DUODOPA [Suspect]
     Active Substance: CARBIDOPA\LEVODOPA
     Dosage: MD=8ML??CD=4.9ML/HR DURING 16HRS ??ED=3ML
     Route: 050
     Dates: start: 20180822, end: 20181203
  3. DUODOPA [Suspect]
     Active Substance: CARBIDOPA\LEVODOPA
     Dosage: MD=8ML, CD=4.2ML/HR DURING 16HRS, ED=3.1ML
     Route: 050
     Dates: start: 20190507, end: 20190516
  4. DUODOPA [Suspect]
     Active Substance: CARBIDOPA\LEVODOPA
     Dosage: MD=8ML??CD=4.6ML/HR DURING 16HRS ??ED=3ML
     Route: 050
     Dates: start: 20180424, end: 20180822
  5. DUODOPA [Suspect]
     Active Substance: CARBIDOPA\LEVODOPA
     Dosage: MD=8ML??CD=4.9ML/HR DURING 16HRS ??ED=3.5ML
     Route: 050
     Dates: start: 20181203, end: 20190502
  6. DUODOPA [Suspect]
     Active Substance: CARBIDOPA\LEVODOPA
     Dosage: MD=8ML??CD=4.5ML/HR DURING 16HRS ??ED=3.3ML
     Route: 050
     Dates: start: 20190502, end: 20190507
  7. DUODOPA [Suspect]
     Active Substance: CARBIDOPA\LEVODOPA
     Dosage: AM: 8ML; CD: 4ML/H FOR 16HRS; ED: 2.8ML
     Route: 050
     Dates: start: 20190516

REACTIONS (4)
  - Thermal burn [Unknown]
  - Device issue [Recovered/Resolved]
  - Device occlusion [Recovered/Resolved]
  - Dyskinesia [Not Recovered/Not Resolved]
